FAERS Safety Report 11311530 (Version 2)
Quarter: 2015Q4

REPORT INFORMATION
  Report Type: Spontaneous
  Country: US (occurrence: US)
  Receive Date: 20150727
  Receipt Date: 20151002
  Transmission Date: 20160304
  Serious: Yes (Other)
  Sender: FDA-Public Use
  Company Number: PHEH2015US014070

PATIENT
  Age: 60 Year
  Sex: Male

DRUGS (1)
  1. GLEEVEC [Suspect]
     Active Substance: IMATINIB MESYLATE
     Indication: DERMATOFIBROSARCOMA PROTUBERANS
     Dosage: 400 MG, BID
     Route: 065

REACTIONS (5)
  - Nausea [Unknown]
  - Malignant neoplasm progression [Unknown]
  - Tumour pain [Unknown]
  - Incorrect product storage [Unknown]
  - Dermatofibrosarcoma protuberans [Unknown]
